FAERS Safety Report 7701207-8 (Version None)
Quarter: 2011Q3

REPORT INFORMATION
  Report Type: 
  Country: None (occurrence: None)
  Receive Date: 20110822
  Receipt Date: 20110224
  Transmission Date: 20111222
  Serious: Yes (Hospitalization)
  Sender: FDA-Public Use
  Company Number: US-GLAXOSMITHKLINE-A0915671A

PATIENT
  Age: 49 Year
  Sex: Male

DRUGS (1)
  1. AVANDAMET [Suspect]
     Indication: DIABETES MELLITUS
     Route: 048
     Dates: start: 20080101, end: 20100201

REACTIONS (6)
  - HYPERTENSION [None]
  - DYSLIPIDAEMIA [None]
  - PAIN IN EXTREMITY [None]
  - PALPITATIONS [None]
  - CHEST PAIN [None]
  - CORONARY ARTERY DISEASE [None]
